FAERS Safety Report 5803643-3 (Version None)
Quarter: 2008Q3

REPORT INFORMATION
  Report Type: 
  Country: None (occurrence: None)
  Receive Date: 20080708
  Receipt Date: 20080626
  Transmission Date: 20090109
  Serious: Yes (Other)
  Sender: FDA-Public Use
  Company Number: US-PFIZER INC-2008054349

PATIENT
  Sex: Male
  Weight: 109.09 kg

DRUGS (10)
  1. VIAGRA [Suspect]
     Indication: ERECTILE DYSFUNCTION
     Dates: start: 20070101, end: 20080101
  2. LIPITOR [Concomitant]
  3. LASIX [Concomitant]
  4. POTASSIUM CHLORIDE [Concomitant]
  5. ATENOLOL [Concomitant]
  6. TIKOSYN [Concomitant]
  7. REQUIP [Concomitant]
  8. KLONOPIN [Concomitant]
  9. AMARYL [Concomitant]
  10. ACTOS [Concomitant]

REACTIONS (1)
  - CARDIAC OPERATION [None]
